FAERS Safety Report 6647309-9 (Version None)
Quarter: 2010Q1

REPORT INFORMATION
  Report Type: 
  Country: None (occurrence: None)
  Receive Date: 20100323
  Receipt Date: 20100315
  Transmission Date: 20100710
  Serious: Yes (Hospitalization)
  Sender: FDA-Public Use
  Company Number: B0631160A

PATIENT
  Sex: Male

DRUGS (4)
  1. ALKERAN [Suspect]
     Indication: B-CELL LYMPHOMA
     Dosage: 250MCG PER DAY
     Route: 042
     Dates: start: 20091007, end: 20091007
  2. ETOPOSIDE [Suspect]
     Indication: B-CELL LYMPHOMA
     Dosage: 350MG PER DAY
     Route: 042
     Dates: start: 20091002, end: 20091002
  3. CYTARABINE [Suspect]
     Indication: B-CELL LYMPHOMA
     Dosage: 750MG PER DAY
     Route: 042
     Dates: start: 20091003, end: 20091003
  4. LOMUSTINE [Concomitant]
     Indication: B-CELL LYMPHOMA
     Dosage: 360MG PER DAY
     Route: 042
     Dates: start: 20091002, end: 20091002

REACTIONS (2)
  - PYREXIA [None]
  - STAPHYLOCOCCAL SEPSIS [None]
